FAERS Safety Report 10658195 (Version 1)
Quarter: 2014Q4

REPORT INFORMATION
  Report Type: Report from Study
  Country: US (occurrence: US)
  Receive Date: 20141217
  Receipt Date: 20141217
  Transmission Date: 20150529
  Serious: Yes (Hospitalization)
  Sender: FDA-Public Use
  Company Number: US-SA-2014SA173922

PATIENT
  Age: 71 Year
  Sex: Female

DRUGS (1)
  1. AUBAGIO [Suspect]
     Active Substance: TERIFLUNOMIDE
     Route: 048
     Dates: start: 20140903

REACTIONS (9)
  - Multiple sclerosis relapse [Unknown]
  - Unevaluable event [Unknown]
  - Fatigue [Unknown]
  - Gait disturbance [Unknown]
  - Haemoptysis [Unknown]
  - Coordination abnormal [Unknown]
  - Gait disturbance [Unknown]
  - Speech disorder [Unknown]
  - Somnolence [Unknown]

NARRATIVE: CASE EVENT DATE: 2014
